FAERS Safety Report 5223685-9 (Version None)
Quarter: 2007Q1

REPORT INFORMATION
  Report Type: 
  Country: None (occurrence: None)
  Receive Date: 20070130
  Receipt Date: 20070118
  Transmission Date: 20070707
  Serious: Yes (Other)
  Sender: FDA-Public Use
  Company Number: CA-JNJFOC-20070105401

PATIENT
  Sex: Female
  Weight: 45.36 kg

DRUGS (7)
  1. TRAMACET [Suspect]
     Indication: PAIN
     Dosage: 3-4 TABLETS
     Route: 048
  2. PROPRANOLOL [Concomitant]
     Route: 065
  3. DIAZEPAM [Concomitant]
     Route: 065
  4. LOSEC [Concomitant]
     Route: 065
  5. LOVASTATIN [Concomitant]
     Route: 065
  6. CIPROFLOXACIN [Concomitant]
     Route: 065
  7. WARFARIN SODIUM [Concomitant]
     Route: 065

REACTIONS (4)
  - DIZZINESS [None]
  - DRUG WITHDRAWAL SYNDROME [None]
  - ELECTROCARDIOGRAM ABNORMAL [None]
  - TRANSIENT ISCHAEMIC ATTACK [None]
